FAERS Safety Report 23774063 (Version 1)
Quarter: 2024Q2

REPORT INFORMATION
  Report Type: Spontaneous
  Country: US (occurrence: US)
  Receive Date: 20240423
  Receipt Date: 20240423
  Transmission Date: 20240715
  Serious: No
  Sender: FDA-Public Use
  Company Number: US-PFIZER INC-202400091133

PATIENT
  Age: 16 Year
  Sex: Female

DRUGS (2)
  1. CIBINQO [Suspect]
     Active Substance: ABROCITINIB
     Indication: Dermatitis atopic
     Dosage: 100MG/D
  2. CIBINQO [Suspect]
     Active Substance: ABROCITINIB
     Indication: Eczema

REACTIONS (1)
  - Condition aggravated [Unknown]
